FAERS Safety Report 6996394-3 (Version None)
Quarter: 2010Q3

REPORT INFORMATION
  Report Type: 
  Country: None (occurrence: None)
  Receive Date: 20100918
  Receipt Date: 20090323
  Transmission Date: 20110219
  Serious: No
  Sender: FDA-Public Use
  Company Number: US-WYE-H08328009

PATIENT
  Sex: Female

DRUGS (5)
  1. EFFEXOR XR [Suspect]
     Indication: DEPRESSION
     Dosage: ^TITRATED UP TO 300 MG DAILY^
     Route: 048
     Dates: start: 20040101, end: 20081001
  2. EFFEXOR XR [Suspect]
     Route: 048
     Dates: start: 20081001, end: 20090101
  3. EFFEXOR XR [Suspect]
     Dosage: ^OPENED A 150 MG CAPSULE AND TOOK A PARTIAL DOSE^
     Route: 048
     Dates: start: 20090101
  4. ANASTROZOLE [Concomitant]
  5. LIPITOR [Concomitant]

REACTIONS (3)
  - DRUG WITHDRAWAL SYNDROME [None]
  - PRURITUS GENERALISED [None]
  - WRONG TECHNIQUE IN DRUG USAGE PROCESS [None]
